FAERS Safety Report 6382689-3 (Version None)
Quarter: 2009Q3

REPORT INFORMATION
  Report Type: 
  Country: None (occurrence: None)
  Receive Date: 20090930
  Receipt Date: 20090923
  Transmission Date: 20100115
  Serious: Yes (Death, Hospitalization)
  Sender: FDA-Public Use
  Company Number: US-SANOFI-SYNTHELABO-A03200903431

PATIENT
  Sex: Female
  Weight: 66.25 kg

DRUGS (10)
  1. ELOXATIN [Suspect]
     Indication: COLON CANCER
     Route: 042
     Dates: start: 20090413
  2. AVASTIN [Suspect]
     Indication: DRUG USE FOR UNKNOWN INDICATION
     Dosage: UNK
     Route: 065
  3. TOFRANIL-PM [Concomitant]
     Indication: SLEEP DISORDER
     Route: 065
  4. DARVOCET-N 100 [Concomitant]
     Indication: PAIN
     Dosage: ONE -TWO TABLETS EVERY FOUR TO SIX HOURS
     Route: 065
  5. ATIVAN [Concomitant]
     Indication: ANXIETY
     Route: 065
  6. BENADRYL [Concomitant]
     Indication: DRUG USE FOR UNKNOWN INDICATION
     Dosage: UNK
     Route: 042
     Dates: start: 20090413
  7. DEXAMETHASONE 4MG TAB [Concomitant]
     Indication: DRUG USE FOR UNKNOWN INDICATION
     Dosage: UNK
     Route: 065
     Dates: start: 20090413
  8. DOXIL [Concomitant]
     Indication: DRUG USE FOR UNKNOWN INDICATION
     Dosage: UNK
     Route: 065
     Dates: start: 20090413
  9. FLUOROURACIL [Concomitant]
     Indication: DRUG USE FOR UNKNOWN INDICATION
     Dosage: UNK
     Route: 065
     Dates: start: 20090413
  10. LEUCOVORIN CALCIUM [Concomitant]
     Indication: DRUG USE FOR UNKNOWN INDICATION
     Dosage: UNK
     Route: 065
     Dates: start: 20090413

REACTIONS (3)
  - DYSPNOEA [None]
  - PNEUMONITIS [None]
  - PYREXIA [None]
